FAERS Safety Report 5047856-X (Version None)
Quarter: 2006Q3

REPORT INFORMATION
  Report Type: 
  Country: None (occurrence: None)
  Receive Date: 20060706
  Receipt Date: 20060706
  Transmission Date: 20061208
  Serious: Yes (Other)
  Sender: FDA-Public Use
  Company Number: None

PATIENT
  Age: 71 Year
  Sex: Male
  Weight: 95.2554 kg

DRUGS (1)
  1. LEVAQUIN [Suspect]
     Indication: PNEUMONIA
     Dosage: 500 MG  QD  PO
     Route: 048
     Dates: start: 20060508, end: 20060517

REACTIONS (7)
  - ANXIETY [None]
  - ARRHYTHMIA [None]
  - CHEST DISCOMFORT [None]
  - MYALGIA [None]
  - PAIN IN EXTREMITY [None]
  - PARAESTHESIA [None]
  - SINUS TACHYCARDIA [None]
